FAERS Safety Report 15840526 (Version 1)
Quarter: 2019Q1

REPORT INFORMATION
  Report Type: Spontaneous
  Country: US (occurrence: US)
  Receive Date: 20190118
  Receipt Date: 20190118
  Transmission Date: 20190417
  Serious: Yes (Other)
  Sender: FDA-Public Use
  Company Number: US-ROCHE-2247119

PATIENT

DRUGS (2)
  1. ALECENSA [Suspect]
     Active Substance: ALECTINIB HYDROCHLORIDE
     Indication: NON-SMALL CELL LUNG CANCER
     Route: 065
  2. APIXABAN [Concomitant]
     Active Substance: APIXABAN
     Dosage: ONGOING: UNKNOWN
     Route: 065

REACTIONS (1)
  - Autoimmune haemolytic anaemia [Unknown]
